FAERS Safety Report 18656373 (Version 1)
Quarter: 2020Q4

REPORT INFORMATION
  Report Type: Report from Study
  Country: KR (occurrence: KR)
  Receive Date: 20201223
  Receipt Date: 20201223
  Transmission Date: 20210114
  Serious: Yes (Hospitalization)
  Sender: FDA-Public Use
  Company Number: KR-FERRINGPH-2020FE09004

PATIENT
  Age: 84 Year
  Sex: Male
  Weight: 67 kg

DRUGS (7)
  1. GLIATAMIN [Concomitant]
     Active Substance: CHOLINE ALFOSCERATE
     Indication: DEMENTIA
     Dosage: UNK
     Dates: start: 20170724
  2. ZOLADEX LA [Concomitant]
     Active Substance: GOSERELIN ACETATE
     Indication: PROSTATE CANCER
     Dosage: UNK
     Dates: start: 20110905
  3. ALDACTONE [Concomitant]
     Active Substance: SPIRONOLACTONE
     Indication: OEDEMA
     Dosage: UNK
     Dates: start: 20201106
  4. MOROXACIN [Concomitant]
     Indication: BRONCHITIS
     Dosage: UNK
     Dates: start: 20201110, end: 20201110
  5. ALFUZON XL [Concomitant]
     Indication: BENIGN PROSTATIC HYPERPLASIA
     Dosage: UNK
     Dates: start: 20121029
  6. DESMOPRESSIN [Suspect]
     Active Substance: DESMOPRESSIN
     Indication: NOCTURIA
     Dosage: 0.1 MG, 1 TIME DAILY
     Route: 048
     Dates: start: 20120917, end: 20201111
  7. XTANDI [Suspect]
     Active Substance: ENZALUTAMIDE
     Indication: PROSTATE CANCER
     Dosage: 160 MG, 1 TIME DAILY
     Route: 048
     Dates: start: 20140924, end: 20201119

REACTIONS (3)
  - Hypertension [Not Recovered/Not Resolved]
  - Contraindicated product administered [Unknown]
  - Labelled drug-drug interaction issue [Unknown]

NARRATIVE: CASE EVENT DATE: 20201111
